FAERS Safety Report 9960574 (Version 1)
Quarter: 2014Q1

REPORT INFORMATION
  Report Type: Report from Study
  Country: US (occurrence: US)
  Receive Date: 20140305
  Receipt Date: 20140305
  Transmission Date: 20141002
  Serious: No
  Sender: FDA-Public Use
  Company Number: US-ABBVIE-13P-163-1107535-00

PATIENT
  Age: 55 Year
  Sex: Female

DRUGS (7)
  1. HUMIRA [Suspect]
     Indication: COLITIS ULCERATIVE
     Dates: start: 20130614, end: 20130614
  2. HUMIRA [Suspect]
  3. ASACOL [Concomitant]
     Indication: COLITIS ULCERATIVE
  4. MAXIDE [Concomitant]
     Indication: HYPERTENSION
  5. ASPIRIN [Concomitant]
     Indication: PROPHYLAXIS
  6. IRON [Concomitant]
     Indication: ANAEMIA
  7. HYDROCORTISONE ENEMA [Concomitant]
     Indication: COLITIS ULCERATIVE

REACTIONS (2)
  - Injection site pain [Recovered/Resolved]
  - Injection site reaction [Recovered/Resolved]
